FAERS Safety Report 13152434 (Version 1)
Quarter: 2017Q1

REPORT INFORMATION
  Report Type: Report from Study
  Country: None (occurrence: IT)
  Receive Date: 20170125
  Receipt Date: 20170125
  Transmission Date: 20170428
  Serious: Yes (Death)
  Sender: FDA-Public Use
  Company Number: IT-ABBVIE-17P-083-1847373-00

PATIENT
  Age: 52 Year
  Sex: Female
  Weight: 84 kg

DRUGS (1)
  1. DUODOPA [Suspect]
     Active Substance: CARBIDOPA\LEVODOPA
     Indication: PARKINSON^S DISEASE
     Dosage: MD5+3??CR 2.8??ED 2.0
     Route: 050
     Dates: start: 20160706, end: 20170110

REACTIONS (1)
  - Cardiac arrest [Fatal]

NARRATIVE: CASE EVENT DATE: 20170110
